FAERS Safety Report 9254580 (Version 1)
Quarter: 2013Q2

REPORT INFORMATION
  Report Type: Spontaneous
  Country: US (occurrence: None)
  Receive Date: 20130422
  Receipt Date: 20130422
  Transmission Date: 20140414
  Serious: Yes (Disabling, Other)
  Sender: FDA-Public Use
  Company Number: None

PATIENT
  Age: 82 Year
  Sex: Female
  Weight: 50.8 kg

DRUGS (2)
  1. AZATHIOPRINE [Suspect]
     Indication: MYASTHENIC SYNDROME
     Dates: start: 20130411, end: 20130411
  2. AZATHIOORUBE [Concomitant]

REACTIONS (12)
  - Vomiting [None]
  - Retching [None]
  - Diarrhoea [None]
  - Pyrexia [None]
  - Hyperhidrosis [None]
  - Chills [None]
  - Muscle spasms [None]
  - Faeces pale [None]
  - Pruritus generalised [None]
  - Pain [None]
  - Malaise [None]
  - Drug ineffective [None]
